FAERS Safety Report 5373707-X (Version None)
Quarter: 2007Q2

REPORT INFORMATION
  Report Type: 
  Country: None (occurrence: None)
  Receive Date: 20070621
  Receipt Date: 20060831
  Transmission Date: 20071010
  Serious: Yes (Other)
  Sender: FDA-Public Use
  Company Number: US-JNJFOC-20060806862

PATIENT
  Age: 1 Year
  Sex: Male

DRUGS (1)
  1. LEUSTATIN [Suspect]
     Indication: MALIGNANT HISTIOCYTOSIS
     Dosage: 5 MG/M2, INTRAVENOUS
     Route: 042
     Dates: start: 20060801

REACTIONS (1)
  - DIZZINESS [None]
